FAERS Safety Report 8058172-6 (Version None)
Quarter: 2012Q1

REPORT INFORMATION
  Report Type: 
  Country: None (occurrence: None)
  Receive Date: 20120120
  Receipt Date: 20120110
  Transmission Date: 20120608
  Serious: Yes (Hospitalization, Other)
  Sender: FDA-Public Use
  Company Number: US-BAYER-2011-038799

PATIENT
  Age: 41 Year
  Sex: Female
  Weight: 77.551 kg

DRUGS (13)
  1. AMOXICILLIN [Concomitant]
     Dosage: 875 MG, UNK
  2. LIDOCAINE [Concomitant]
  3. YAZ [Suspect]
     Indication: PREMENSTRUAL SYNDROME
  4. AVELOX [Concomitant]
     Dosage: 400 MG, UNK
  5. YAZ [Suspect]
     Indication: CONTRACEPTION
     Dosage: UNK
     Dates: start: 20080101, end: 20090101
  6. SINGULAIR [Concomitant]
  7. LORAZEPAM [Concomitant]
     Dosage: 0.5 MG, UNK
  8. OXYCODONE HCL AND ACETAMINOPHEN [Concomitant]
  9. SYMBICORT [Concomitant]
  10. YAZ [Suspect]
  11. HYDROCODONE BITARTRATE AND ACETAMINOPHEN [Concomitant]
  12. DIOVAN [Concomitant]
  13. MEPERIDINE HCL [Concomitant]
     Dosage: 50 MG, UNK

REACTIONS (8)
  - GALLBLADDER DISORDER [None]
  - DEEP VEIN THROMBOSIS [None]
  - FEAR [None]
  - CHOLECYSTITIS [None]
  - INJURY [None]
  - PAIN [None]
  - ANXIETY [None]
  - ANHEDONIA [None]
